FAERS Safety Report 25995481 (Version 1)
Quarter: 2025Q4

REPORT INFORMATION
  Report Type: Spontaneous
  Country: US (occurrence: None)
  Receive Date: 20251103
  Receipt Date: 20251103
  Transmission Date: 20260118
  Serious: Yes (Death)
  Sender: FDA-CTU
  Company Number: None

PATIENT
  Age: 71 Year
  Sex: Male

DRUGS (6)
  1. TACROLIMUS [Suspect]
     Active Substance: TACROLIMUS
     Indication: Heart transplant
     Dosage: FREQUENCY : DAILY;?
     Route: 048
     Dates: start: 20250616
  2. TACROLIMUS [Suspect]
     Active Substance: TACROLIMUS
     Indication: Renal transplant
  3. SIROLIMUS [Suspect]
     Active Substance: SIROLIMUS
     Indication: Heart transplant
     Dosage: FREQUENCY : DAILY;?
     Route: 048
     Dates: start: 20250903
  4. SIROLIMUS [Suspect]
     Active Substance: SIROLIMUS
     Indication: Renal transplant
  5. ENVARSUS XR [Concomitant]
     Active Substance: TACROLIMUS
  6. DROXIDOPA [Concomitant]
     Active Substance: DROXIDOPA

REACTIONS (1)
  - Aneurysm [None]

NARRATIVE: CASE EVENT DATE: 20250912
